FAERS Safety Report 5818664-4 (Version None)
Quarter: 2008Q3

REPORT INFORMATION
  Report Type: 
  Country: None (occurrence: None)
  Receive Date: 20080721
  Receipt Date: 20080721
  Transmission Date: 20090109
  Serious: No
  Sender: FDA-Public Use
  Company Number: None

PATIENT
  Age: 48 Year
  Sex: Female

DRUGS (10)
  1. BOTOX [Suspect]
     Indication: HYPERHIDROSIS
     Dates: start: 20060601
  2. BOTOX [Suspect]
     Indication: HYPERHIDROSIS
     Dates: start: 20061101
  3. BOTOX [Suspect]
     Indication: HYPERHIDROSIS
     Dates: start: 20070401
  4. BOTOX [Suspect]
     Indication: HYPERHIDROSIS
     Dates: start: 20070901
  5. BOTOX [Suspect]
     Indication: HYPERHIDROSIS
     Dates: start: 20080501
  6. IBUPROFEN [Concomitant]
  7. BENADRYL [Concomitant]
  8. MULTI-VITAMIN [Concomitant]
  9. ASCORBIC ACID [Concomitant]
  10. EPIPEN [Concomitant]

REACTIONS (4)
  - ANTINUCLEAR ANTIBODY POSITIVE [None]
  - LYMPHOEDEMA [None]
  - PAIN [None]
  - SKIN WARM [None]
